FAERS Safety Report 5333354-2 (Version None)
Quarter: 2007Q2

REPORT INFORMATION
  Report Type: 
  Country: None (occurrence: None)
  Receive Date: 20070524
  Receipt Date: 20070516
  Transmission Date: 20071010
  Serious: Yes (Hospitalization, Other)
  Sender: FDA-Public Use
  Company Number: US-AVENTIS-200713666US

PATIENT
  Sex: Female
  Weight: 82 kg

DRUGS (3)
  1. DDAVP [Suspect]
     Indication: DIABETES INSIPIDUS
     Route: 048
     Dates: start: 19870101
  2. DILANTIN [Concomitant]
     Dosage: DOSE: UNK
  3. GROWTH HORMONE (NOS) [Concomitant]
     Indication: GROWTH HORMONE DEFICIENCY
     Dosage: DOSE: UNK

REACTIONS (5)
  - BLOOD SODIUM INCREASED [None]
  - FLUID RETENTION [None]
  - MIGRAINE [None]
  - OLIGURIA [None]
  - VITAL CAPACITY DECREASED [None]
